FAERS Safety Report 6859377-X (Version None)
Quarter: 2010Q3

REPORT INFORMATION
  Report Type: 
  Country: None (occurrence: None)
  Receive Date: 20100719
  Receipt Date: 20080227
  Transmission Date: 20110219
  Serious: No
  Sender: FDA-Public Use
  Company Number: US-PFIZER INC-2008021150

PATIENT
  Sex: Female
  Weight: 72.7 kg

DRUGS (3)
  1. CHANTIX [Suspect]
     Indication: SMOKING CESSATION THERAPY
     Dates: start: 20080101
  2. VALTREX [Concomitant]
     Indication: HERPES ZOSTER
  3. ESTROSTEP [Concomitant]
     Indication: HYSTERECTOMY

REACTIONS (2)
  - DRUG DOSE OMISSION [None]
  - NAUSEA [None]
